FAERS Safety Report 19639407 (Version 1)
Quarter: 2021Q3

REPORT INFORMATION
  Report Type: Report from Study
  Country: TH (occurrence: TH)
  Receive Date: 20210730
  Receipt Date: 20210730
  Transmission Date: 20211014
  Serious: Yes (Other)
  Sender: FDA-Public Use
  Company Number: TH-SUN PHARMACEUTICAL INDUSTRIES LTD-2021R1-306203

PATIENT
  Age: 46 Year
  Sex: Male

DRUGS (1)
  1. METHOTREXATE. [Suspect]
     Active Substance: METHOTREXATE
     Indication: PSORIATIC ARTHROPATHY
     Dosage: UNK
     Route: 065

REACTIONS (1)
  - Psoriatic arthropathy [Unknown]
